FAERS Safety Report 4854505-X (Version None)
Quarter: 2005Q4

REPORT INFORMATION
  Report Type: 
  Country: None (occurrence: None)
  Receive Date: 20051215
  Receipt Date: 20051004
  Transmission Date: 20060501
  Serious: Yes (Other)
  Sender: FDA-Public Use
  Company Number: 2005AC01582

PATIENT
  Age: 55 Year
  Sex: Male
  Weight: 86 kg

DRUGS (14)
  1. BUPIVACAINE [Suspect]
     Indication: SPINAL ANAESTHESIA
     Route: 037
  2. BUPIVACAINE [Suspect]
     Indication: ANALGESIC EFFECT
     Route: 037
  3. BUPIVACAINE [Suspect]
     Dosage: GIVEN AFTER SURGERY.
     Route: 008
  4. BUPIVACAINE [Suspect]
     Dosage: GIVEN AFTER SURGERY.
     Route: 008
  5. VERAPAMIL [Concomitant]
  6. SIMVASTATIN [Concomitant]
  7. LITHIUM [Concomitant]
  8. VALPROIC ACID [Concomitant]
  9. SUMATRIPTAN SUCCINATE [Concomitant]
  10. OMEPRAZOLE [Concomitant]
  11. BUPROPION HCL [Concomitant]
  12. MIDAZOLAM [Concomitant]
     Indication: SEDATIVE THERAPY
     Route: 042
  13. DROPERIDOL [Concomitant]
     Indication: NAUSEA
     Dosage: GIVEN 15 MINUTES AFTER THE BEGINNING OF SURGERY.
     Route: 042
  14. EPHEDRINE [Concomitant]
     Indication: HYPOTENSION
     Dosage: GIVEN ON 3 OCCASIONS DURING PROCEDURE.
     Route: 042

REACTIONS (3)
  - APNOEA [None]
  - PROCEDURAL HYPOTENSION [None]
  - SLEEP APNOEA SYNDROME [None]
